FAERS Safety Report 14693104 (Version 1)
Quarter: 2018Q1

REPORT INFORMATION
  Report Type: Spontaneous
  Country: IN (occurrence: IN)
  Receive Date: 20180329
  Receipt Date: 20180329
  Transmission Date: 20180509
  Serious: Yes (Hospitalization, Other)
  Sender: FDA-Public Use
  Company Number: IN-MACLEODS PHARMACEUTICALS US LTD-MAC2018012001

PATIENT

DRUGS (1)
  1. AMLODIPINE BESYLATE TABLET [Suspect]
     Active Substance: AMLODIPINE BESYLATE
     Indication: PRODUCT USED FOR UNKNOWN INDICATION
     Dosage: 40 DF, UNK
     Route: 048

REACTIONS (8)
  - Bradycardia [Recovering/Resolving]
  - Metabolic acidosis [Recovering/Resolving]
  - Acute respiratory distress syndrome [Unknown]
  - Hypotension [Recovering/Resolving]
  - Vomiting [Unknown]
  - Cardiovascular disorder [Recovering/Resolving]
  - Haemodynamic instability [Recovering/Resolving]
  - Overdose [Unknown]
